FAERS Safety Report 14038299 (Version 1)
Quarter: 2017Q4

REPORT INFORMATION
  Report Type: Report from Study
  Country: DO (occurrence: DO)
  Receive Date: 20171004
  Receipt Date: 20171004
  Transmission Date: 20180321
  Serious: Yes (Death)
  Sender: FDA-Public Use
  Company Number: DO-ASTRAZENECA-2017SE99235

PATIENT
  Age: 77 Year
  Sex: Female

DRUGS (2)
  1. ATACAND [Suspect]
     Active Substance: CANDESARTAN CILEXETIL
     Route: 048
     Dates: start: 20150509
  2. CRESTOR [Concomitant]
     Active Substance: ROSUVASTATIN CALCIUM
     Dates: start: 20150509

REACTIONS (1)
  - Death [Fatal]

NARRATIVE: CASE EVENT DATE: 201702
